FAERS Safety Report 17478792 (Version 1)
Quarter: 2020Q1

REPORT INFORMATION
  Report Type: Spontaneous
  Country: FR (occurrence: FR)
  Receive Date: 20200228
  Receipt Date: 20200228
  Transmission Date: 20200409
  Serious: Yes (Hospitalization)
  Sender: FDA-Public Use
  Company Number: FR-BRISTOL-MYERS SQUIBB COMPANY-BMS-2020-015929

PATIENT
  Age: 65 Year
  Sex: Female
  Weight: 72 kg

DRUGS (1)
  1. ELIQUIS [Suspect]
     Active Substance: APIXABAN
     Indication: DEEP VEIN THROMBOSIS
     Dosage: 2 DOSAGE FORM DAILY
     Route: 048
     Dates: start: 201910

REACTIONS (2)
  - Speech disorder [Recovering/Resolving]
  - Dyspraxia [Recovering/Resolving]

NARRATIVE: CASE EVENT DATE: 20200206
